FAERS Safety Report 25510379 (Version 1)
Quarter: 2025Q3

REPORT INFORMATION
  Report Type: Spontaneous
  Country: US (occurrence: US)
  Receive Date: 20250703
  Receipt Date: 20250703
  Transmission Date: 20251021
  Serious: No
  Sender: RADIUS PHARM
  Company Number: US-RADIUS HEALTH INC.-2024US003267

PATIENT
  Sex: Female

DRUGS (1)
  1. TYMLOS [Suspect]
     Active Substance: ABALOPARATIDE
     Indication: Product used for unknown indication

REACTIONS (11)
  - Thirst [Unknown]
  - Feeling abnormal [Not Recovered/Not Resolved]
  - Haematuria [Unknown]
  - Crystalluria [Unknown]
  - Epistaxis [Unknown]
  - Haemorrhage [Unknown]
  - Condition aggravated [Unknown]
  - Dry mouth [Unknown]
  - Weight increased [Unknown]
  - Heart rate increased [Unknown]
  - Vertigo [Recovered/Resolved]
